FAERS Safety Report 5223409-5 (Version None)
Quarter: 2007Q1

REPORT INFORMATION
  Report Type: 
  Country: None (occurrence: None)
  Receive Date: 20070124
  Receipt Date: 20070112
  Transmission Date: 20070707
  Serious: Yes (Other)
  Sender: FDA-Public Use
  Company Number: DEWYE130912JAN07

PATIENT
  Sex: Female

DRUGS (1)
  1. VENLAFAXINE HCL [Suspect]
     Dosage: 75 MG PER DAY ORAL
     Route: 048
     Dates: start: 20061012

REACTIONS (3)
  - ALVEOLITIS [None]
  - CHRONIC OBSTRUCTIVE PULMONARY DISEASE [None]
  - PYREXIA [None]
